FAERS Safety Report 9886619 (Version 1)
Quarter: 2014Q1

REPORT INFORMATION
  Report Type: Spontaneous
  Country: AU (occurrence: AU)
  Receive Date: 20140210
  Receipt Date: 20140210
  Transmission Date: 20141002
  Serious: Yes (Hospitalization, Other)
  Sender: FDA-Public Use
  Company Number: AU-WATSON-2014-02431

PATIENT
  Age: 26 Year
  Sex: Female

DRUGS (3)
  1. PREDNISONE (UNKNOWN) [Suspect]
     Indication: IMPLANT SITE SWELLING
     Dosage: ON TWO OCCASIONS , FORM 4 TO 16 WEEKS  AFTER THE IMPLANT
     Route: 048
  2. CELESTONE CHRONODOSE [Suspect]
     Indication: IMPLANT SITE SWELLING
     Dosage: 1 ML, THREE OCCASIONS
     Route: 051
  3. QUETIAPINE [Concomitant]
     Indication: INSOMNIA
     Dosage: UNK
     Route: 065

REACTIONS (2)
  - Gastritis [Recovered/Resolved]
  - Genital herpes [Recovered/Resolved]
